FAERS Safety Report 9548902 (Version 1)
Quarter: 2013Q3

REPORT INFORMATION
  Report Type: Spontaneous
  Country: US (occurrence: None)
  Receive Date: 20130705
  Receipt Date: 20130705
  Transmission Date: 20140515
  Serious: Yes (Death)
  Sender: FDA-Public Use
  Company Number: 2013020094

PATIENT
  Age: 48 Year
  Sex: Female

DRUGS (5)
  1. LAMOTRIGINE (LAMOTRIGINE) [Suspect]
  2. CARISOPRODOL (CARISOPRODOL) [Suspect]
  3. MORPHINE [Suspect]
  4. TRAMADOL (TRAMADOL) [Suspect]
  5. BUTALBITAL (BUTALBITAL) [Suspect]

REACTIONS (1)
  - Drug abuse [None]
